FAERS Safety Report 16996292 (Version 3)
Quarter: 2019Q4

REPORT INFORMATION
  Report Type: Spontaneous
  Country: US (occurrence: US)
  Receive Date: 20191105
  Receipt Date: 20191226
  Transmission Date: 20200122
  Serious: No
  Sender: FDA-Public Use
  Company Number: US-PFIZER INC-2019478189

PATIENT
  Age: 51 Year
  Sex: Female
  Weight: 69.4 kg

DRUGS (6)
  1. IBUPROFEN. [Suspect]
     Active Substance: IBUPROFEN
     Indication: SPINAL OPERATION
     Dosage: UNK
  2. ADVIL LIQUI-GELS [Suspect]
     Active Substance: IBUPROFEN
     Indication: PAIN
     Dosage: UNK
  3. ADVIL PM [Suspect]
     Active Substance: DIPHENHYDRAMINE CITRATE\IBUPROFEN
     Indication: SPINAL OPERATION
     Dosage: UNK
  4. ADVIL PM [Suspect]
     Active Substance: DIPHENHYDRAMINE CITRATE\IBUPROFEN
     Indication: PAIN
  5. IBUPROFEN. [Suspect]
     Active Substance: IBUPROFEN
     Indication: PAIN
  6. ADVIL LIQUI-GELS [Suspect]
     Active Substance: IBUPROFEN
     Indication: SPINAL OPERATION
     Dosage: UNK

REACTIONS (3)
  - Drug ineffective [Unknown]
  - Fall [Unknown]
  - Musculoskeletal discomfort [Unknown]
